FAERS Safety Report 9139047 (Version 2)
Quarter: 2013Q2

REPORT INFORMATION
  Report Type: Spontaneous
  Country: US (occurrence: US)
  Receive Date: 20130305
  Receipt Date: 20130516
  Transmission Date: 20140414
  Serious: Yes (Hospitalization)
  Sender: FDA-Public Use
  Company Number: US-BAYER-2013-027430

PATIENT
  Age: 29 Year
  Sex: Female
  Weight: 63.49 kg

DRUGS (9)
  1. YAZ [Suspect]
     Dosage: UNK
     Dates: start: 2006, end: 201012
  2. ENOXAPARIN [Concomitant]
  3. NAPROXEN [Concomitant]
     Dosage: UNK
     Dates: start: 20101227
  4. ARIXTRA [Concomitant]
  5. ADVIL [Concomitant]
     Indication: PAIN
     Dosage: 2-4 PILLS, TAKEN WITHIN 20 DAYS OF INJURY
  6. LIDODERM [Concomitant]
     Dosage: 5% PATCH, ON 12 HOURS OFF 12 HOURS
  7. HEPATITIS A VACCINE [Concomitant]
  8. MALARONE [Concomitant]
     Dosage: 250-100, TAKE ONE TABLET DAILY, START 2 DAYS BEFORE TRAVEL COMPLETED FOR 5 DAYS AFTER TRAVEL.
  9. VIVOTIF BERNA [Concomitant]
     Dosage: TAKE ONE EVERY OTHER DAY PRIOR TO MEAL
     Route: 048

REACTIONS (6)
  - Pulmonary embolism [Recovered/Resolved]
  - Deep vein thrombosis [Recovered/Resolved]
  - Emotional distress [None]
  - Pain [Recovered/Resolved]
  - Injury [Recovered/Resolved]
  - Cardiac disorder [None]
